FAERS Safety Report 12704900 (Version 1)
Quarter: 2016Q3

REPORT INFORMATION
  Report Type: Report from Study
  Country: US (occurrence: US)
  Receive Date: 20160831
  Receipt Date: 20160831
  Transmission Date: 20161109
  Serious: No
  Sender: FDA-Public Use
  Company Number: PHEH2016US021761

PATIENT
  Sex: Female

DRUGS (1)
  1. ENTRESTO [Suspect]
     Active Substance: SACUBITRIL\VALSARTAN
     Indication: CARDIAC FAILURE
     Dosage: (49/51 IN THE MORNING AND 97/103MG AT NIGHT), BID
     Route: 048

REACTIONS (4)
  - Fall [Unknown]
  - Asthenia [Unknown]
  - Incorrect dosage administered [Unknown]
  - Hypotension [Unknown]
